FAERS Safety Report 18806626 (Version 1)
Quarter: 2021Q1

REPORT INFORMATION
  Report Type: Report from Study
  Country: US (occurrence: US)
  Receive Date: 20210128
  Receipt Date: 20210128
  Transmission Date: 20210419
  Serious: Yes (Other)
  Sender: FDA-Public Use
  Company Number: US-JNJFOC-20210135550

PATIENT

DRUGS (15)
  1. HALDOL [Suspect]
     Active Substance: HALOPERIDOL
     Route: 042
  2. HALDOL [Suspect]
     Active Substance: HALOPERIDOL
     Route: 042
  3. OLANZAPINE. [Suspect]
     Active Substance: OLANZAPINE
     Route: 042
  4. HALDOL [Suspect]
     Active Substance: HALOPERIDOL
     Route: 042
  5. OLANZAPINE. [Suspect]
     Active Substance: OLANZAPINE
     Route: 042
  6. HALDOL [Suspect]
     Active Substance: HALOPERIDOL
     Indication: AGITATION
     Route: 042
  7. HALDOL [Suspect]
     Active Substance: HALOPERIDOL
     Route: 042
  8. OLANZAPINE. [Suspect]
     Active Substance: OLANZAPINE
     Route: 042
  9. HALDOL [Suspect]
     Active Substance: HALOPERIDOL
     Route: 042
  10. HALDOL [Suspect]
     Active Substance: HALOPERIDOL
     Route: 042
  11. HALDOL [Suspect]
     Active Substance: HALOPERIDOL
     Route: 042
  12. OLANZAPINE. [Suspect]
     Active Substance: OLANZAPINE
     Route: 042
  13. HALDOL [Suspect]
     Active Substance: HALOPERIDOL
     Route: 042
  14. OLANZAPINE. [Suspect]
     Active Substance: OLANZAPINE
     Indication: AGITATION
     Route: 042
  15. OLANZAPINE. [Suspect]
     Active Substance: OLANZAPINE
     Route: 042

REACTIONS (5)
  - Somnolence [Unknown]
  - Bradycardia [Unknown]
  - Oxygen saturation decreased [Unknown]
  - Respiratory depression [Unknown]
  - Hypotension [Unknown]
